FAERS Safety Report 7879303-4 (Version None)
Quarter: 2011Q4

REPORT INFORMATION
  Report Type: 
  Country: None (occurrence: None)
  Receive Date: 20111101
  Receipt Date: 20111028
  Transmission Date: 20120403
  Serious: Yes (Other)
  Sender: FDA-Public Use
  Company Number: BR-PFIZER INC-2011263896

PATIENT
  Age: 67 Year
  Sex: Female
  Weight: 74 kg

DRUGS (3)
  1. PRISTIQ [Suspect]
     Indication: DEPRESSION
     Dosage: 50 MG, ONE TABLET IN THE MORNING
     Route: 048
     Dates: start: 20110101
  2. LOSARTAN POTASSIUM [Concomitant]
     Indication: HYPERTENSION
     Dosage: A HALF OF A TABLET OF 50MG (25 MG) IN THE MORNING AND A HALF OF TABLET OF 50MG (25 MG) AT NIGHT
     Dates: start: 20090101
  3. BROMAZEPAM [Concomitant]
     Dosage: 3 MG, ONE TABLET AT NIGHT

REACTIONS (3)
  - OSTEOARTHRITIS [None]
  - MYALGIA [None]
  - INSOMNIA [None]
